FAERS Safety Report 9206113 (Version 2)
Quarter: 2013Q2

REPORT INFORMATION
  Report Type: Spontaneous
  Country: US (occurrence: US)
  Receive Date: 20130403
  Receipt Date: 20130411
  Transmission Date: 20140414
  Serious: No
  Sender: FDA-Public Use
  Company Number: US-BAYER-2013-038266

PATIENT
  Sex: 0

DRUGS (1)
  1. GADAVIST [Suspect]

REACTIONS (2)
  - Nausea [None]
  - Vomiting [None]
